FAERS Safety Report 7479672-3 (Version None)
Quarter: 2011Q2

REPORT INFORMATION
  Report Type: 
  Country: None (occurrence: None)
  Receive Date: 20110513
  Receipt Date: 20110506
  Transmission Date: 20111010
  Serious: Yes (Death, Hospitalization, Other)
  Sender: FDA-Public Use
  Company Number: US-ELI_LILLY_AND_COMPANY-US201101005693

PATIENT
  Sex: Female
  Weight: 56.236 kg

DRUGS (19)
  1. THERA TEARS [Concomitant]
     Dosage: UNK, UNKNOWN
     Route: 065
  2. AVALIDE [Concomitant]
     Dosage: 300-12.5MG, QD
     Route: 048
  3. FISH OIL [Concomitant]
     Dosage: 1760 MG, QD
     Route: 065
  4. TYLENOL                                 /SCH/ [Concomitant]
     Indication: ARTHRITIS
     Dosage: UNK, WHEN NEEDED
     Route: 065
  5. ALENDRONATE SODIUM [Concomitant]
     Dosage: 70 MG, WEEKLY (1/W)
     Route: 048
  6. VITAMIN B-12 [Concomitant]
     Dosage: 1000 UG, QD
     Route: 065
  7. CALCIUM 600 + D [Concomitant]
     Dosage: UNK, QD
     Route: 065
  8. PREMARIN [Concomitant]
     Dosage: 0.625 MG, QD
     Route: 048
  9. LIPITOR [Concomitant]
     Dosage: 40 MG, QD
     Route: 048
  10. CLONAZEPAM [Concomitant]
     Dosage: 0.5 MG, BID
     Route: 048
  11. ASPIRIN [Concomitant]
     Dosage: 81 MG, TAKE TWO TABLETS DAILY
     Route: 048
  12. EFFIENT [Suspect]
     Indication: PERIPHERAL VASCULAR DISORDER
     Dosage: 10 MG, QD
     Route: 048
     Dates: start: 20110101
  13. COLCHICINE [Concomitant]
     Dosage: 0.6 MG, QD
     Route: 048
  14. METOCLOPRAMIDE HCL [Concomitant]
     Dosage: 10 MG, 3 TIMES DAILY
     Route: 048
  15. COUMADIN [Concomitant]
     Dosage: 5 MG, QD
     Route: 048
  16. ACTOS [Concomitant]
     Dosage: 30 MG, QD
     Route: 048
  17. OMEPRAZOLE [Concomitant]
     Dosage: 20 MG, BID
     Route: 048
  18. LEVOTHYROXINE SODIUM [Concomitant]
     Dosage: 75 UG, QD
     Route: 048
  19. LOTREL [Concomitant]
     Dosage: 10-40MG, QD
     Route: 048

REACTIONS (8)
  - PANCYTOPENIA [None]
  - CONFUSIONAL STATE [None]
  - OFF LABEL USE [None]
  - DECREASED APPETITE [None]
  - GASTROINTESTINAL NECROSIS [None]
  - NAUSEA [None]
  - RENAL FAILURE ACUTE [None]
  - VOMITING [None]
